FAERS Safety Report 15618548 (Version 1)
Quarter: 2018Q4

REPORT INFORMATION
  Report Type: Spontaneous
  Country: US (occurrence: US)
  Receive Date: 20181114
  Receipt Date: 20181114
  Transmission Date: 20190205
  Serious: No
  Sender: FDA-Public Use
  Company Number: US-PFIZER INC-2018456352

PATIENT
  Age: 4 Year
  Sex: Female
  Weight: 13.15 kg

DRUGS (2)
  1. GENOTROPIN [Suspect]
     Active Substance: SOMATROPIN
     Indication: BLOOD GROWTH HORMONE
     Dosage: 0.5 ML, DAILY (0.5 ML INJECTED DAILY)
     Dates: start: 20180818
  2. GENOTROPIN [Suspect]
     Active Substance: SOMATROPIN
     Dosage: UNK
     Dates: end: 201809

REACTIONS (4)
  - Malaise [Recovered/Resolved]
  - Product dose omission [Unknown]
  - Influenza [Recovered/Resolved]
  - Pyrexia [Recovered/Resolved]

NARRATIVE: CASE EVENT DATE: 201809
